FAERS Safety Report 5191534-3 (Version None)
Quarter: 2006Q4

REPORT INFORMATION
  Report Type: 
  Country: None (occurrence: None)
  Receive Date: 20061219
  Receipt Date: 20061219
  Transmission Date: 20070319
  Serious: No
  Sender: FDA-Public Use
  Company Number: None

PATIENT
  Age: 17 Year
  Sex: Male
  Weight: 77.1115 kg

DRUGS (2)
  1. ZOLOFT [Suspect]
     Indication: ANXIETY
  2. PAXIL [Suspect]
     Indication: ANXIETY

REACTIONS (6)
  - AZOOSPERMIA [None]
  - ERECTILE DYSFUNCTION [None]
  - HYPOAESTHESIA OF GENITAL MALE [None]
  - MALE ORGASMIC DISORDER [None]
  - POLLAKIURIA [None]
  - SEXUAL DYSFUNCTION [None]
